FAERS Safety Report 7981877-X (Version None)
Quarter: 2011Q4

REPORT INFORMATION
  Report Type: 
  Country: None (occurrence: None)
  Receive Date: 20111215
  Receipt Date: 20111206
  Transmission Date: 20120403
  Serious: Yes (Hospitalization)
  Sender: FDA-Public Use
  Company Number: FR-JNJFOC-20111204140

PATIENT
  Age: 26 Year

DRUGS (2)
  1. MINOXIDIL [Suspect]
     Route: 048
  2. MINOXIDIL [Suspect]
     Indication: PRODUCT USED FOR UNKNOWN INDICATION
     Route: 048

REACTIONS (6)
  - TACHYCARDIA [None]
  - TOXICITY TO VARIOUS AGENTS [None]
  - HYPOTENSION [None]
  - ELECTROCARDIOGRAM ST SEGMENT DEPRESSION [None]
  - INTENTIONAL SELF-INJURY [None]
  - ANGINA PECTORIS [None]
